FAERS Safety Report 6472455-2 (Version None)
Quarter: 2009Q4

REPORT INFORMATION
  Report Type: 
  Country: None (occurrence: None)
  Receive Date: 20091201
  Receipt Date: 20091118
  Transmission Date: 20100525
  Serious: Yes (Hospitalization, Other)
  Sender: FDA-Public Use
  Company Number: 2009-195823-NL

PATIENT
  Age: 29 Year
  Sex: Female

DRUGS (1)
  1. NUVARING [Suspect]
     Indication: CONTRACEPTION
     Dosage: 1 DF; ONCE; VAG
     Route: 067
     Dates: start: 20070731, end: 20070810

REACTIONS (14)
  - BODY TEMPERATURE INCREASED [None]
  - CAVERNOUS SINUS THROMBOSIS [None]
  - CEREBROVASCULAR ACCIDENT [None]
  - GRAND MAL CONVULSION [None]
  - HYPERTENSION [None]
  - INTRACRANIAL VENOUS SINUS THROMBOSIS [None]
  - JUGULAR VEIN THROMBOSIS [None]
  - MIGRAINE [None]
  - SINUS TACHYCARDIA [None]
  - SUPERIOR SAGITTAL SINUS THROMBOSIS [None]
  - THROMBOPHLEBITIS [None]
  - TRANSVERSE SINUS THROMBOSIS [None]
  - URINARY TRACT INFECTION [None]
  - WHITE BLOOD CELL COUNT INCREASED [None]
